FAERS Safety Report 20408383 (Version 2)
Quarter: 2022Q1

REPORT INFORMATION
  Report Type: Spontaneous
  Country: US (occurrence: US)
  Receive Date: 20220201
  Receipt Date: 20220311
  Transmission Date: 20220423
  Serious: No
  Sender: FDA-Public Use
  Company Number: US-SA-SAC20220127000527

PATIENT
  Age: 35 Year
  Sex: Female
  Weight: 56.69 kg

DRUGS (32)
  1. DUPIXENT [Suspect]
     Active Substance: DUPILUMAB
     Indication: Asthma
     Dosage: 200 MG, QOW
     Route: 058
     Dates: start: 20191203
  2. DUPIXENT [Suspect]
     Active Substance: DUPILUMAB
     Indication: Cystic fibrosis
  3. DUPIXENT [Suspect]
     Active Substance: DUPILUMAB
     Indication: Pseudomonas infection
  4. TRIKAFTA [Suspect]
     Active Substance: ELEXACAFTOR\IVACAFTOR\TEZACAFTOR
  5. PULMOZYME [Concomitant]
     Active Substance: DORNASE ALFA
  6. ADVAIR HFA [Concomitant]
     Active Substance: FLUTICASONE PROPIONATE\SALMETEROL XINAFOATE
  7. ALEVE [Concomitant]
     Active Substance: NAPROXEN SODIUM
  8. ALLEGRA ALLERGY [Concomitant]
     Active Substance: FEXOFENADINE HYDROCHLORIDE
  9. AZITHROMYCIN [Concomitant]
     Active Substance: AZITHROMYCIN
  10. CALCIUM CARBONATE [Concomitant]
     Active Substance: CALCIUM CARBONATE
  11. CAYSTON [Concomitant]
     Active Substance: AZTREONAM
  12. CEFUROXIME [Concomitant]
     Active Substance: CEFUROXIME
  13. CHEWABLE IRON [Concomitant]
     Route: 048
  14. CREON [Concomitant]
     Active Substance: PANCRELIPASE AMYLASE\PANCRELIPASE LIPASE\PANCRELIPASE PROTEASE
  15. DOXYCYCLINE [Concomitant]
     Active Substance: DOXYCYCLINE
  16. FLOVENT [Concomitant]
     Active Substance: FLUTICASONE PROPIONATE
  17. MEROPENEM [Concomitant]
     Active Substance: MEROPENEM
  18. PEPCID [Concomitant]
     Active Substance: FAMOTIDINE
  19. QNASL [Concomitant]
     Active Substance: BECLOMETHASONE DIPROPIONATE
  20. SUMATRIPTAN SUCCINATE [Concomitant]
     Active Substance: SUMATRIPTAN SUCCINATE
  21. SYMDEKO [Concomitant]
     Active Substance: IVACAFTOR\TEZACAFTOR
  22. TOBRAMYCIN [Concomitant]
     Active Substance: TOBRAMYCIN
  23. VENLAFAXINE [Concomitant]
     Active Substance: VENLAFAXINE HYDROCHLORIDE
  24. VITAMIN B COMPLEX [Concomitant]
     Active Substance: CYANOCOBALAMIN\DEXPANTHENOL\NIACINAMIDE\PYRIDOXINE HYDROCHLORIDE\RIBOFLAVIN 5^-PHOSPHATE SODIUM\THIA
  25. HERBALS\TURMERIC [Concomitant]
     Active Substance: HERBALS\TURMERIC
  26. VITAMIN D3 [Concomitant]
     Active Substance: CHOLECALCIFEROL
  27. VITAMIN C [Concomitant]
     Active Substance: ASCORBIC ACID
  28. ACETYLCYSTEINE [Concomitant]
     Active Substance: ACETYLCYSTEINE
  29. LEVALBUTEROL [Concomitant]
     Active Substance: LEVALBUTEROL
  30. MAGNESIUM [MAGNESIUM CITRATE] [Concomitant]
  31. PROBIOTICS NOS [Concomitant]
     Active Substance: PROBIOTICS NOS
  32. DAILY-VITE [Concomitant]

REACTIONS (3)
  - Gastrooesophageal reflux disease [Unknown]
  - Aphonia [Unknown]
  - Product use in unapproved indication [Unknown]

NARRATIVE: CASE EVENT DATE: 20191203
